FAERS Safety Report 4508366-9 (Version None)
Quarter: 2004Q4

REPORT INFORMATION
  Report Type: 
  Country: None (occurrence: None)
  Receive Date: 20041123
  Receipt Date: 20040114
  Transmission Date: 20050328
  Serious: No
  Sender: FDA-Public Use
  Company Number: US-GLAXOSMITHKLINE-A0494062A

PATIENT
  Age: 56 Year
  Sex: Female

DRUGS (2)
  1. WELLBUTRIN [Suspect]
     Dosage: 150MG PER DAY
     Route: 048
     Dates: start: 20040113, end: 20040113
  2. ESTROGEN [Concomitant]

REACTIONS (4)
  - DYSPHAGIA [None]
  - FEELING HOT [None]
  - RASH [None]
  - RASH PAPULAR [None]
